FAERS Safety Report 11560788 (Version 1)
Quarter: 2015Q3

REPORT INFORMATION
  Report Type: Spontaneous
  Country: US (occurrence: US)
  Receive Date: 20150916
  Receipt Date: 20150916
  Transmission Date: 20151125
  Serious: No
  Sender: FDA-Public Use
  Company Number: US-ELI_LILLY_AND_COMPANY-US200810001251

PATIENT
  Age: 78 Year
  Sex: Female

DRUGS (10)
  1. ZETIA [Concomitant]
     Active Substance: EZETIMIBE
     Dosage: 10 MG, DAILY (1/D)
  2. VITAMIN D [Concomitant]
     Active Substance: CHOLECALCIFEROL
  3. PREVACID [Concomitant]
     Active Substance: LANSOPRAZOLE
     Dosage: 30 MG, DAILY (1/D)
  4. CALCIUM MAGNESIUM /01412301/ [Concomitant]
  5. ASPIRIN. [Concomitant]
     Active Substance: ASPIRIN
     Dosage: 81 MG, UNK
     Dates: end: 200809
  6. GLUCOSAMINE SULFATE W/CHONDROITIN [Concomitant]
  7. FORTEO [Suspect]
     Active Substance: TERIPARATIDE
     Dates: start: 192111
  8. HYDROCHLOROTHIAZIDE. [Concomitant]
     Active Substance: HYDROCHLOROTHIAZIDE
     Dosage: 25 MG, DAILY (1/D)
  9. NAPROSYN [Concomitant]
     Active Substance: NAPROXEN
     Dosage: 500 MG, DAILY (1/D)
  10. FORTEO [Suspect]
     Active Substance: TERIPARATIDE
     Dosage: UNK, UNK
     Dates: start: 20080925, end: 200810

REACTIONS (1)
  - Contusion [Recovered/Resolved]

NARRATIVE: CASE EVENT DATE: 200810
